FAERS Safety Report 4751508-0 (Version None)
Quarter: 2005Q3

REPORT INFORMATION
  Report Type: 
  Country: None (occurrence: None)
  Receive Date: 20050824
  Receipt Date: 20050812
  Transmission Date: 20060218
  Serious: Yes (Hospitalization)
  Sender: FDA-Public Use
  Company Number: US-GLAXOSMITHKLINE-A0570020A

PATIENT
  Age: 47 Year
  Sex: Male
  Weight: 88 kg

DRUGS (3)
  1. NICODERM CQ [Suspect]
     Route: 062
     Dates: start: 20050803, end: 20050805
  2. NICODERM CQ [Suspect]
     Route: 062
     Dates: start: 20050614, end: 20050803
  3. NEXIUM [Concomitant]
     Dosage: 40MG PER DAY
     Route: 048

REACTIONS (8)
  - ANXIETY [None]
  - BLOOD PRESSURE INCREASED [None]
  - CHEST DISCOMFORT [None]
  - CHEST PAIN [None]
  - HEART RATE INCREASED [None]
  - NICOTINE DEPENDENCE [None]
  - PALPITATIONS [None]
  - TOBACCO ABUSE [None]
